FAERS Safety Report 11398990 (Version 1)
Quarter: 2015Q3

REPORT INFORMATION
  Report Type: Spontaneous
  Country: US (occurrence: None)
  Receive Date: 20150818
  Receipt Date: 20150818
  Transmission Date: 20151125
  Serious: Yes (Other)
  Sender: FDA-Public Use
  Company Number: None

PATIENT
  Age: 29 Year
  Sex: Female
  Weight: 88 kg

DRUGS (1)
  1. ESTRADIOL PATCH 0.0375MG MYLAN [Suspect]
     Active Substance: ESTRADIOL
     Indication: OOPHORECTOMY
     Dates: start: 20150723

REACTIONS (4)
  - Product substitution issue [None]
  - Hallucination [None]
  - Product adhesion issue [None]
  - Blister [None]

NARRATIVE: CASE EVENT DATE: 20150723
